FAERS Safety Report 23266371 (Version 1)
Quarter: 2023Q4

REPORT INFORMATION
  Report Type: Spontaneous
  Country: US (occurrence: None)
  Receive Date: 20231206
  Receipt Date: 20231206
  Transmission Date: 20240110
  Serious: No
  Sender: FDA-Public Use
  Company Number: 2023A266715

PATIENT
  Sex: Female

DRUGS (1)
  1. BUDESONIDE\FORMOTEROL [Suspect]
     Active Substance: BUDESONIDE\FORMOTEROL
     Dosage: 80 UG , TWO TIMES A DAY
     Route: 055
     Dates: start: 20231117

REACTIONS (2)
  - Lip injury [Unknown]
  - Incorrect dose administered [Unknown]
